FAERS Safety Report 7833919 (Version 2)
Quarter: 2012Q4

REPORT INFORMATION
  Report Type: Report from Study
  Country: DE (occurrence: DE)
  Receive Date: 20110228
  Receipt Date: 20120904
  Transmission Date: 20130627
  Serious: Yes (Hospitalization)
  Sender: FDA-Public Use
  Company Number: DE-ROCHE-760970

PATIENT
  Age: 70 Year
  Sex: Male
  Weight: 81 kg

DRUGS (7)
  1. AVASTIN [Suspect]
     Indication: NON-SMALL CELL LUNG CANCER METASTATIC
     Dosage: DATE OF LAST DOSE PRIOR TO SAE: 04 FEBRUARY 2011
     Route: 042
  2. PEMETREXED DISODIUM [Suspect]
     Indication: NON-SMALL CELL LUNG CANCER METASTATIC
     Dosage: DATE OF LAST DOSE PRIOR TO SAE: 05 NOVEMBER 2010
     Route: 042
  3. CARBOPLATIN [Suspect]
     Indication: NON-SMALL CELL LUNG CANCER METASTATIC
     Dosage: DOSE: 550 AUC, FREQUENCY: D1, DATE OF LAST DOSE PRIOR TO SAE: 05 NOVEMBER 2010.
     Route: 042
  4. METFORMIN [Concomitant]
  5. AMARYL [Concomitant]
  6. TAMSULOSIN [Concomitant]
  7. PANTOPRAZOLE [Concomitant]
     Dosage: AS REQUIRED

REACTIONS (1)
  - General physical health deterioration [Recovered/Resolved]
